FAERS Safety Report 23796597 (Version 1)
Quarter: 2024Q2

REPORT INFORMATION
  Report Type: Spontaneous
  Country: AU (occurrence: AU)
  Receive Date: 20240430
  Receipt Date: 20240430
  Transmission Date: 20240716
  Serious: Yes (Death, Other)
  Sender: FDA-Public Use
  Company Number: AU-CHEPLA-2024005376

PATIENT
  Age: 57 Year
  Sex: Male

DRUGS (43)
  1. VALGANCICLOVIR [Suspect]
     Active Substance: VALGANCICLOVIR
     Indication: Prophylaxis
  2. VALGANCICLOVIR [Suspect]
     Active Substance: VALGANCICLOVIR
     Indication: Prophylaxis
     Dosage: DOSE-REDUCED
  3. AMPHOTERICIN B [Suspect]
     Active Substance: AMPHOTERICIN B
     Indication: Eye infection fungal
     Dosage: STRENGTH: 10?G/0.1ML,
  4. AMPHOTERICIN B [Suspect]
     Active Substance: AMPHOTERICIN B
     Indication: Endophthalmitis
     Dosage: STRENGTH: 10?G/0.1ML,
  5. AMPHOTERICIN B [Suspect]
     Active Substance: AMPHOTERICIN B
     Indication: Eye infection fungal
     Dosage: CEASED DUE TO CONCERN FOR? POTENTIAL DRUG ANTAGONISM
  6. AMPHOTERICIN B [Suspect]
     Active Substance: AMPHOTERICIN B
     Indication: Endophthalmitis
     Dosage: CEASED DUE TO CONCERN FOR? POTENTIAL DRUG ANTAGONISM
  7. VORICONAZOLE [Suspect]
     Active Substance: VORICONAZOLE
     Indication: Endophthalmitis
     Dosage: BID?DAILY DOSE: 400 MILLIGRAM
  8. VORICONAZOLE [Suspect]
     Active Substance: VORICONAZOLE
     Indication: Eye infection fungal
     Dosage: BID?DAILY DOSE: 400 MILLIGRAM
  9. VORICONAZOLE [Suspect]
     Active Substance: VORICONAZOLE
     Indication: Endophthalmitis
     Dosage: BID?DAILY DOSE: 500 MILLIGRAM
  10. VORICONAZOLE [Suspect]
     Active Substance: VORICONAZOLE
     Indication: Eye infection fungal
     Dosage: BID?DAILY DOSE: 500 MILLIGRAM
  11. VORICONAZOLE [Suspect]
     Active Substance: VORICONAZOLE
     Indication: Endophthalmitis
     Dosage: CEASED
     Route: 048
  12. VORICONAZOLE [Suspect]
     Active Substance: VORICONAZOLE
     Indication: Eye infection fungal
     Dosage: CEASED
     Route: 048
  13. TERBINAFINE [Suspect]
     Active Substance: TERBINAFINE
     Indication: Endophthalmitis
  14. TERBINAFINE [Suspect]
     Active Substance: TERBINAFINE
     Indication: Eye infection fungal
  15. TERBINAFINE [Suspect]
     Active Substance: TERBINAFINE
     Indication: Endophthalmitis
     Dosage: BID?DAILY DOSE: 500 MILLIGRAM
  16. TERBINAFINE [Suspect]
     Active Substance: TERBINAFINE
     Indication: Eye infection fungal
     Dosage: BID?DAILY DOSE: 500 MILLIGRAM
  17. TERBINAFINE [Suspect]
     Active Substance: TERBINAFINE
     Indication: Endophthalmitis
     Dosage: CEASED
     Route: 048
  18. TERBINAFINE [Suspect]
     Active Substance: TERBINAFINE
     Indication: Eye infection fungal
     Dosage: CEASED
     Route: 048
  19. TACROLIMUS [Suspect]
     Active Substance: TACROLIMUS
     Indication: Endophthalmitis
  20. TACROLIMUS [Suspect]
     Active Substance: TACROLIMUS
     Indication: Eye infection fungal
  21. CEFTAZIDIME [Suspect]
     Active Substance: CEFTAZIDIME
     Indication: Endophthalmitis
  22. CEFTAZIDIME [Suspect]
     Active Substance: CEFTAZIDIME
     Indication: Eye infection fungal
  23. VANCOMYCIN [Suspect]
     Active Substance: VANCOMYCIN
     Indication: Endophthalmitis
  24. VANCOMYCIN [Suspect]
     Active Substance: VANCOMYCIN
     Indication: Eye infection fungal
  25. FOSCARNET [Suspect]
     Active Substance: FOSCARNET
     Indication: Endophthalmitis
  26. FOSCARNET [Suspect]
     Active Substance: FOSCARNET
     Indication: Eye infection fungal
  27. FLUCYTOSINE [Suspect]
     Active Substance: FLUCYTOSINE
     Indication: Endophthalmitis
  28. FLUCYTOSINE [Suspect]
     Active Substance: FLUCYTOSINE
     Indication: Eye infection fungal
  29. ANIDULAFUNGIN [Suspect]
     Active Substance: ANIDULAFUNGIN
     Indication: Endophthalmitis
  30. ANIDULAFUNGIN [Suspect]
     Active Substance: ANIDULAFUNGIN
     Indication: Eye infection fungal
  31. POSACONAZOLE [Suspect]
     Active Substance: POSACONAZOLE
     Indication: Endophthalmitis
  32. POSACONAZOLE [Suspect]
     Active Substance: POSACONAZOLE
     Indication: Eye infection fungal
  33. CASPOFUNGIN [Suspect]
     Active Substance: CASPOFUNGIN
     Indication: Endophthalmitis
     Dosage: 100 ?G/0.1ML
  34. CASPOFUNGIN [Suspect]
     Active Substance: CASPOFUNGIN
     Indication: Eye infection fungal
     Dosage: 100 ?G/0.1ML
  35. OLOROFIM [Suspect]
     Active Substance: OLOROFIM
     Indication: Endophthalmitis
     Dosage: DAILY DOSE: 150 MILLIGRAM
  36. OLOROFIM [Suspect]
     Active Substance: OLOROFIM
     Indication: Eye infection fungal
     Dosage: DAILY DOSE: 150 MILLIGRAM
  37. OLOROFIM [Suspect]
     Active Substance: OLOROFIM
     Indication: Endophthalmitis
     Dosage: BID?DAILY DOSE: 180 MILLIGRAM
  38. OLOROFIM [Suspect]
     Active Substance: OLOROFIM
     Indication: Eye infection fungal
     Dosage: BID?DAILY DOSE: 180 MILLIGRAM
  39. SULFAMETHOXAZOLE\TRIMETHOPRIM [Suspect]
     Active Substance: SULFAMETHOXAZOLE\TRIMETHOPRIM
  40. MICAFUNGIN [Suspect]
     Active Substance: MICAFUNGIN SODIUM
     Indication: Endophthalmitis
     Dosage: DAILY DOSE: 300 MILLIGRAM
  41. MICAFUNGIN [Suspect]
     Active Substance: MICAFUNGIN SODIUM
     Indication: Eye infection fungal
     Dosage: DAILY DOSE: 300 MILLIGRAM
  42. MICAFUNGIN [Suspect]
     Active Substance: MICAFUNGIN SODIUM
     Indication: Endophthalmitis
     Dosage: DAILY DOSE: 150 MILLIGRAM
  43. MICAFUNGIN [Suspect]
     Active Substance: MICAFUNGIN SODIUM
     Indication: Eye infection fungal
     Dosage: DAILY DOSE: 150 MILLIGRAM

REACTIONS (6)
  - Eye infection fungal [Fatal]
  - Condition aggravated [Fatal]
  - Neutropenia [Unknown]
  - Renal impairment [Unknown]
  - Drug resistance [Unknown]
  - Intraocular pressure test [Unknown]
